FAERS Safety Report 8926620 (Version 1)
Quarter: 2012Q4

REPORT INFORMATION
  Report Type: 
  Country: DE (occurrence: DE)
  Receive Date: 20121127
  Receipt Date: 20121127
  Transmission Date: 20130627
  Serious: Yes (Other)
  Sender: FDA-Public Use
  Company Number: DE-NAPPMUNDI-DEU-2012-0009836

PATIENT
  Age: 64 Year
  Sex: Male

DRUGS (1)
  1. PALLADONE [Suspect]
     Indication: CANCER PAIN
     Dosage: 16 mg, daily
     Route: 048
     Dates: start: 20121110

REACTIONS (3)
  - Yellow skin [Not Recovered/Not Resolved]
  - Blood alkaline phosphatase increased [Not Recovered/Not Resolved]
  - Hepatic enzyme increased [Not Recovered/Not Resolved]
